FAERS Safety Report 23464072 (Version 2)
Quarter: 2024Q1

REPORT INFORMATION
  Report Type: Report from Study
  Country: US (occurrence: US)
  Receive Date: 20240201
  Receipt Date: 20240206
  Transmission Date: 20240410
  Serious: Yes (Other)
  Sender: FDA-Public Use
  Company Number: US-SANOFI-01925028

PATIENT
  Age: 59 Year
  Sex: Female

DRUGS (1)
  1. KEVZARA [Suspect]
     Active Substance: SARILUMAB
     Indication: Rheumatoid arthritis
     Dosage: 200 MG, QOW
     Route: 058
     Dates: start: 2018

REACTIONS (15)
  - Rheumatoid arthritis [Unknown]
  - Eyelid rash [Unknown]
  - Condition aggravated [Unknown]
  - Eyelid pain [Unknown]
  - Inflammation [Unknown]
  - Eyelid oedema [Unknown]
  - Condition aggravated [Unknown]
  - COVID-19 [Unknown]
  - Pain [Unknown]
  - Eye swelling [Unknown]
  - Rash [Unknown]
  - Chronic sinusitis [Unknown]
  - Periorbital infection [Unknown]
  - Acute sinusitis [Unknown]
  - Intentional product misuse [Unknown]

NARRATIVE: CASE EVENT DATE: 20231205
